FAERS Safety Report 11647359 (Version 1)
Quarter: 2015Q4

REPORT INFORMATION
  Report Type: Report from Study
  Country: CA (occurrence: CA)
  Receive Date: 20151021
  Receipt Date: 20151021
  Transmission Date: 20160304
  Serious: Yes (Other)
  Sender: FDA-Public Use
  Company Number: CA-ROCHE-1610997

PATIENT
  Sex: Female

DRUGS (2)
  1. PIRFENIDONE [Suspect]
     Active Substance: PIRFENIDONE
     Route: 048
     Dates: start: 20150918, end: 20150918
  2. PIRFENIDONE [Suspect]
     Active Substance: PIRFENIDONE
     Indication: IDIOPATHIC PULMONARY FIBROSIS
     Route: 048
     Dates: start: 20150415

REACTIONS (2)
  - Rash [Not Recovered/Not Resolved]
  - Local swelling [Recovered/Resolved]

NARRATIVE: CASE EVENT DATE: 20150625
